FAERS Safety Report 9154118 (Version 1)
Quarter: 2013Q1

REPORT INFORMATION
  Report Type: Spontaneous
  Country: US (occurrence: US)
  Receive Date: 20130311
  Receipt Date: 20130311
  Transmission Date: 20140127
  Serious: Yes (Hospitalization)
  Sender: FDA-Public Use
  Company Number: US-PFIZER INC-2013082085

PATIENT
  Age: 82 Year
  Sex: Male
  Weight: 74.83 kg

DRUGS (2)
  1. CARDURA [Suspect]
     Dosage: 2 MG, 1X/DAY
     Route: 048
     Dates: start: 2011
  2. DIOVAN [Concomitant]
     Indication: HYPERTENSION
     Dosage: UNK

REACTIONS (2)
  - Dementia [Unknown]
  - Neuralgia [Unknown]
